FAERS Safety Report 4977660-X (Version None)
Quarter: 2006Q2

REPORT INFORMATION
  Report Type: 
  Country: None (occurrence: None)
  Receive Date: 20060420
  Receipt Date: 20060127
  Transmission Date: 20061013
  Serious: No
  Sender: FDA-Public Use
  Company Number: US-GLAXOSMITHKLINE-A0591148A

PATIENT
  Sex: Male

DRUGS (1)
  1. ESKALITH [Suspect]
     Route: 048

REACTIONS (1)
  - DRUG INEFFECTIVE [None]
